FAERS Safety Report 7068299-3 (Version None)
Quarter: 2010Q4

REPORT INFORMATION
  Report Type: 
  Country: None (occurrence: None)
  Receive Date: 20101028
  Receipt Date: 20101020
  Transmission Date: 20110411
  Serious: Yes (Death, Hospitalization)
  Sender: FDA-Public Use
  Company Number: A0799955A

PATIENT
  Age: 62 Year
  Sex: Male

DRUGS (4)
  1. AVANDIA [Suspect]
     Indication: DIABETES MELLITUS
     Dosage: 8MG PER DAY
     Route: 048
     Dates: start: 20050801, end: 20060327
  2. METFORMIN [Concomitant]
  3. PLAVIX [Concomitant]
  4. ENALAPRIL MALEATE [Concomitant]

REACTIONS (3)
  - CARDIOGENIC SHOCK [None]
  - CORONARY ARTERY DISEASE [None]
  - MYOCARDIAL INFARCTION [None]
